FAERS Safety Report 4697656-5 (Version None)
Quarter: 2005Q2

REPORT INFORMATION
  Report Type: 
  Country: None (occurrence: None)
  Receive Date: 20050620
  Receipt Date: 20041006
  Transmission Date: 20051028
  Serious: Yes (Hospitalization)
  Sender: FDA-Public Use
  Company Number: 200417685US

PATIENT
  Age: 72 Year
  Sex: Female

DRUGS (6)
  1. LANTUS [Suspect]
     Indication: DIABETES MELLITUS NON-INSULIN-DEPENDENT
     Dosage: 12 U
     Dates: start: 20010101
  2. HUMALOG [Suspect]
  3. ENALAPRIL MALEATE [Concomitant]
  4. GLUCOSAMINE SULFATE [Concomitant]
  5. ZYRTEC [Concomitant]
  6. MULTI-VITAMIN [Concomitant]

REACTIONS (3)
  - BLOOD GLUCOSE DECREASED [None]
  - HYPOGLYCAEMIC COMA [None]
  - LOSS OF CONSCIOUSNESS [None]
